FAERS Safety Report 6816808-9 (Version None)
Quarter: 2010Q3

REPORT INFORMATION
  Report Type: 
  Country: None (occurrence: None)
  Receive Date: 20100706
  Receipt Date: 20100622
  Transmission Date: 20110219
  Serious: Yes (Hospitalization)
  Sender: FDA-Public Use
  Company Number: US-ELI_LILLY_AND_COMPANY-US201005007691

PATIENT
  Age: 69 Year
  Sex: Female

DRUGS (3)
  1. FORTEO [Suspect]
     Dates: start: 20100331
  2. PRAVASTATIN [Concomitant]
     Indication: LIPIDS
     Dosage: 20 MG, DAILY (1/D)
  3. PRAVASTATIN [Concomitant]
     Dosage: 20 MG, 3/W

REACTIONS (1)
  - APPENDICECTOMY [None]
